FAERS Safety Report 10565665 (Version 2)
Quarter: 2014Q4

REPORT INFORMATION
  Report Type: Spontaneous
  Country: US (occurrence: US)
  Receive Date: 20141105
  Receipt Date: 20141223
  Transmission Date: 20150529
  Serious: Yes (Hospitalization, Other)
  Sender: FDA-Public Use
  Company Number: 2014SP003477

PATIENT
  Age: 61 Year
  Sex: Male
  Weight: 77 kg

DRUGS (8)
  1. LATUDA [Suspect]
     Active Substance: LURASIDONE HYDROCHLORIDE
     Indication: SCHIZOPHRENIA
     Route: 048
     Dates: end: 201401
  2. CLORAZEPATE [Suspect]
     Active Substance: CLORAZEPATE DIPOTASSIUM
  3. HALOPERIDOL. [Suspect]
     Active Substance: HALOPERIDOL
     Indication: SCHIZOPHRENIA
  4. LATUDA [Suspect]
     Active Substance: LURASIDONE HYDROCHLORIDE
     Indication: SCHIZOPHRENIA
     Route: 048
  5. CHLORPROMAZINE [Concomitant]
     Active Substance: CHLORPROMAZINE
  6. LATUDA [Suspect]
     Active Substance: LURASIDONE HYDROCHLORIDE
     Indication: SCHIZOPHRENIA
     Route: 048
     Dates: start: 201401, end: 201403
  7. HALOPERIDOL. [Suspect]
     Active Substance: HALOPERIDOL
     Indication: SCHIZOPHRENIA
     Dates: start: 201403
  8. CLORAZEPATE [Suspect]
     Active Substance: CLORAZEPATE DIPOTASSIUM

REACTIONS (15)
  - Verbal abuse [Unknown]
  - Cognitive disorder [Recovering/Resolving]
  - Poisoning [Unknown]
  - Delusion [Recovering/Resolving]
  - Physical disability [Unknown]
  - Fall [Unknown]
  - Faecal incontinence [Unknown]
  - Abnormal behaviour [Unknown]
  - Dementia [Recovering/Resolving]
  - Paranoia [Unknown]
  - Hypotonia [Unknown]
  - Mental impairment [Recovering/Resolving]
  - Brain injury [Unknown]
  - Urinary incontinence [Unknown]
  - Lethargy [Unknown]

NARRATIVE: CASE EVENT DATE: 201403
